FAERS Safety Report 11043949 (Version 1)
Quarter: 2015Q2

REPORT INFORMATION
  Report Type: Spontaneous
  Country: US (occurrence: US)
  Receive Date: 20150417
  Receipt Date: 20150417
  Transmission Date: 20150821
  Serious: Yes (Other)
  Sender: FDA-Public Use
  Company Number: US-PERRIGO-15US003715

PATIENT
  Age: 52 Year
  Sex: Male

DRUGS (1)
  1. TESTOSTERONE 1% 1C2 [Suspect]
     Active Substance: TESTOSTERONE
     Indication: HORMONE REPLACEMENT THERAPY
     Dosage: 50 MG, UNKNOWN
     Route: 061

REACTIONS (1)
  - Osteonecrosis [Unknown]
